FAERS Safety Report 14836992 (Version 1)
Quarter: 2018Q2

REPORT INFORMATION
  Report Type: Report from Study
  Country: ES (occurrence: ES)
  Receive Date: 20180502
  Receipt Date: 20180502
  Transmission Date: 20180711
  Serious: Yes (Other)
  Sender: FDA-Public Use
  Company Number: ES-TEVA-2018-ES-887369

PATIENT
  Age: 43 Year
  Sex: Female

DRUGS (2)
  1. ACOVIL 10 MG TABLETS , 28 TABLETS (RAMIPRIL) [Suspect]
     Active Substance: RAMIPRIL
     Route: 048
     Dates: start: 2015, end: 20160224
  2. BISOPROLOL 2,5 MG 28 TABLETS [Suspect]
     Active Substance: BISOPROLOL
     Route: 048
     Dates: start: 2015, end: 20160224

REACTIONS (1)
  - Sinus bradycardia [Recovered/Resolved]

NARRATIVE: CASE EVENT DATE: 20160224
